FAERS Safety Report 5138672-9 (Version None)
Quarter: 2006Q4

REPORT INFORMATION
  Report Type: 
  Country: None (occurrence: None)
  Receive Date: 20061030
  Receipt Date: 20061019
  Transmission Date: 20070319
  Serious: Yes (Death)
  Sender: FDA-Public Use
  Company Number: FR-SANOFI-SYNTHELABO-A01200608786

PATIENT
  Age: 80 Year
  Sex: Female

DRUGS (2)
  1. PLAVIX [Suspect]
     Indication: PULMONARY EMBOLISM
     Dosage: UNK
     Route: 048
  2. PLAVIX [Suspect]
     Indication: MYOCARDIAL INFARCTION
     Dosage: UNK
     Route: 048

REACTIONS (1)
  - CARDIAC FAILURE [None]
